FAERS Safety Report 16395150 (Version 1)
Quarter: 2019Q2

REPORT INFORMATION
  Report Type: Spontaneous
  Country: BR (occurrence: BR)
  Receive Date: 20190605
  Receipt Date: 20190605
  Transmission Date: 20190711
  Serious: Yes (Other)
  Sender: FDA-Public Use
  Company Number: BR-AMGEN-BRASP2019084670

PATIENT
  Age: 77 Year
  Sex: Female
  Weight: 57 kg

DRUGS (3)
  1. ATORVASTATIN CALCIUM. [Concomitant]
     Active Substance: ATORVASTATIN CALCIUM
  2. PROLIA [Suspect]
     Active Substance: DENOSUMAB
     Indication: OSTEOPENIA
     Dosage: 60 MILLIGRAM
     Route: 058
  3. FLUOXETINE [Concomitant]
     Active Substance: FLUOXETINE HYDROCHLORIDE
     Dosage: 50 MILLIGRAM

REACTIONS (5)
  - Sinusitis [Unknown]
  - Depression [Unknown]
  - Helicobacter gastritis [Unknown]
  - Off label use [Unknown]
  - Oral discomfort [Unknown]

NARRATIVE: CASE EVENT DATE: 2019
